FAERS Safety Report 13759032 (Version 1)
Quarter: 2017Q3

REPORT INFORMATION
  Report Type: Report from Study
  Country: ES (occurrence: ES)
  Receive Date: 20170717
  Receipt Date: 20170717
  Transmission Date: 20171127
  Serious: Yes (Death, Hospitalization)
  Sender: FDA-Public Use
  Company Number: ES-PFIZER INC-2017308219

PATIENT
  Age: 67 Year
  Sex: Female

DRUGS (5)
  1. BISOPROLOL [Interacting]
     Active Substance: BISOPROLOL
     Indication: CARDIAC FAILURE CONGESTIVE
     Dosage: 2.5 MG (1-0-0)
     Route: 048
     Dates: start: 20170119, end: 20170125
  2. DIGOXIN. [Concomitant]
     Active Substance: DIGOXIN
     Indication: ATRIAL FIBRILLATION
     Dosage: 125 UG 1X/DAY (1/2 DF OF 250 UG)
     Route: 048
     Dates: start: 20170119, end: 20170125
  3. ENALAPRIL [Interacting]
     Active Substance: ENALAPRIL
     Indication: CARDIAC FAILURE CONGESTIVE
     Dosage: 2.5 MG, 2X/DAY
     Route: 048
     Dates: start: 20170119, end: 20170125
  4. CLEXANE [Concomitant]
     Active Substance: ENOXAPARIN SODIUM
     Indication: ATRIAL FIBRILLATION
     Dosage: 60 MG, 2X/DAY (1-0-1)
     Route: 058
     Dates: start: 20170119
  5. ALDACTONE [Suspect]
     Active Substance: SPIRONOLACTONE
     Dosage: 100 MG, 1X/DAY (1-0-0)
     Route: 048
     Dates: start: 20170119, end: 20170125

REACTIONS (4)
  - Hyperkalaemia [Fatal]
  - Cardiogenic shock [Fatal]
  - Drug interaction [Fatal]
  - Ventricular fibrillation [Fatal]

NARRATIVE: CASE EVENT DATE: 20170125
